FAERS Safety Report 17096392 (Version 1)
Quarter: 2019Q4

REPORT INFORMATION
  Report Type: Spontaneous
  Country: FR (occurrence: FR)
  Receive Date: 20191202
  Receipt Date: 20191202
  Transmission Date: 20200122
  Serious: Yes (Hospitalization)
  Sender: FDA-Public Use
  Company Number: FR-SUN PHARMACEUTICAL INDUSTRIES LTD-2019RR-229276

PATIENT
  Age: 24 Year
  Sex: Male
  Weight: 63 kg

DRUGS (2)
  1. PARACETAMOL [Suspect]
     Active Substance: ACETAMINOPHEN
     Indication: POISONING DELIBERATE
     Dosage: 7500 MILLIGRAM, IN TOTAL
     Route: 048
     Dates: start: 20190322, end: 20190322
  2. NOVOMIX 30 FLEXPEN 100 U/ ML, SUSPENSION INJECTABLE EN STYLO PREREMPLI [Suspect]
     Active Substance: INSULIN ASPART
     Indication: POISONING DELIBERATE
     Dosage: 1 DOSAGE FORM, IN TOTAL
     Route: 058
     Dates: start: 20190322, end: 20190322

REACTIONS (2)
  - Hypokalaemia [Recovered/Resolved]
  - Hypoglycaemia [Recovered/Resolved]

NARRATIVE: CASE EVENT DATE: 20190322
